FAERS Safety Report 8510313-X (Version None)
Quarter: 2012Q3

REPORT INFORMATION
  Report Type: 
  Country: None (occurrence: None)
  Receive Date: 20120713
  Receipt Date: 20120709
  Transmission Date: 20120928
  Serious: Yes (Death)
  Sender: FDA-Public Use
  Company Number: CHPA2012US014571

PATIENT
  Sex: Male

DRUGS (2)
  1. LAXATIVES [Concomitant]
     Dosage: UNK, UNK
  2. PERDIEM OVERNIGHT RELIEF PILLS [Suspect]
     Indication: CONSTIPATION
     Dosage: 2 DF, PRN
     Route: 048

REACTIONS (1)
  - DEATH [None]
